FAERS Safety Report 17930810 (Version 2)
Quarter: 2020Q3

REPORT INFORMATION
  Report Type: Report from Study
  Country: US (occurrence: US)
  Receive Date: 20200623
  Receipt Date: 20200728
  Transmission Date: 20201103
  Serious: Yes (Death)
  Sender: FDA-Public Use
  Company Number: US-RETROPHIN, INC.-2020RTN00064

PATIENT
  Age: 6 Year
  Sex: Female

DRUGS (1)
  1. CHOLIC ACID [Suspect]
     Active Substance: CHOLIC ACID
     Indication: ADRENOLEUKODYSTROPHY
     Dosage: 250 MG, 1X/DAY
     Dates: start: 20170215, end: 20200523

REACTIONS (1)
  - Tracheostomy malfunction [Fatal]

NARRATIVE: CASE EVENT DATE: 20200523
